FAERS Safety Report 8659713 (Version 2)
Quarter: 2012Q4

REPORT INFORMATION
  Report Type: 
  Country: JP (occurrence: JP)
  Receive Date: 20120711
  Receipt Date: 20120904
  Transmission Date: 20130627
  Serious: Yes (Hospitalization, Disabling, Other)
  Sender: FDA-Public Use
  Company Number: JP-PFIZER INC-2012160672

PATIENT
  Age: 57 Year
  Sex: Male

DRUGS (17)
  1. LYRICA [Suspect]
     Indication: DIABETIC NEUROPATHY
     Dosage: 25 mg daily
     Route: 048
     Dates: start: 20110609
  2. LYRICA [Suspect]
     Indication: PAIN IN EXTREMITY
  3. LASIX [Concomitant]
     Indication: OEDEMA
     Dosage: 80 mg, 1x/day
     Route: 048
     Dates: start: 20070607
  4. CALTAN [Concomitant]
     Indication: HYPERPHOSPHATAEMIA
     Dosage: 3 g, 3x/day
     Route: 048
     Dates: start: 20070823
  5. GASTER [Concomitant]
     Indication: GASTRITIS
     Dosage: 10 mg, 1x/day
     Route: 048
     Dates: start: 20100304
  6. MICARDIS [Concomitant]
     Indication: HYPERTENSION
     Dosage: 80 mg, 1x/day
     Route: 048
     Dates: start: 20070528
  7. CALBLOCK [Concomitant]
     Indication: HYPERTENSION
     Dosage: 16 mg, 1x/day
     Route: 048
     Dates: start: 20070604
  8. ADALAT CR [Concomitant]
     Indication: HYPERTENSION
     Dosage: 40 mg, 1x/day
     Route: 048
     Dates: start: 20090319
  9. TANATRIL [Concomitant]
     Indication: HYPERTENSION
     Dosage: 10 mg, 1x/day
     Route: 048
     Dates: start: 20110224
  10. DEPAS [Concomitant]
     Indication: INSOMNIA
     Dosage: 1 mg, 1x/day
     Route: 048
     Dates: start: 20081020
  11. ROHYPNOL [Concomitant]
     Indication: INSOMNIA
     Dosage: 1 mg, 1x/day
     Route: 048
     Dates: start: 20081225
  12. KEISHI-KA-SHAKUYAKU-TO [Concomitant]
     Indication: ABDOMINAL PAIN
     Dosage: 5 g, 2x/day
     Route: 048
     Dates: start: 20101125, end: 20110804
  13. GOSHAJINKIGAN [Concomitant]
     Indication: PAIN IN EXTREMITY
     Dosage: 7.5 g, 3x/day
     Route: 048
     Dates: start: 20110721, end: 20110728
  14. DAI-KENCHU-TO [Concomitant]
     Indication: ABDOMINAL PAIN
     Dosage: 10 g, 2x/day
     Route: 048
     Dates: start: 20110804
  15. HEPARIN [Concomitant]
     Indication: THROMBOSIS
     Dosage: 7.2 ml, 1x/day
     Route: 042
     Dates: start: 20070515
  16. STRONG NEO-MINOPHAGEN C [Concomitant]
     Indication: CHRONIC HEPATITIS
     Dosage: 20 ml, three times weekly
     Route: 042
  17. NESP [Concomitant]
     Indication: NEPHROGENIC ANAEMIA
     Dosage: 30 ug, weekly
     Route: 042

REACTIONS (1)
  - Putamen haemorrhage [Recovered/Resolved with Sequelae]
